FAERS Safety Report 24558095 (Version 3)
Quarter: 2025Q1

REPORT INFORMATION
  Report Type: Spontaneous
  Country: CA (occurrence: CA)
  Receive Date: 20241028
  Receipt Date: 20250227
  Transmission Date: 20250409
  Serious: Yes (Other)
  Sender: BIOMARIN
  Company Number: CA-SA-SAC20240123000599

PATIENT

DRUGS (13)
  1. LARONIDASE [Suspect]
     Active Substance: LARONIDASE
     Indication: Mucopolysaccharidosis I
     Dosage: 11 MG, QW
     Route: 041
     Dates: start: 20230119, end: 20250214
  2. LARONIDASE [Suspect]
     Active Substance: LARONIDASE
     Dosage: 10.85 MG, QW
     Route: 041
     Dates: start: 20250221
  3. LASIX [Concomitant]
     Active Substance: FUROSEMIDE
     Indication: Product used for unknown indication
     Dosage: 1.5 ML, BID
  4. ENALAPRIL [Concomitant]
     Active Substance: ENALAPRIL
     Indication: Product used for unknown indication
     Dosage: 3 MILLILITER, QD
  5. SPIRONOLACTONE [Concomitant]
     Active Substance: SPIRONOLACTONE
     Indication: Product used for unknown indication
     Dosage: 3 ML, QD
  6. ZENHALE [Concomitant]
     Active Substance: FORMOTEROL FUMARATE\MOMETASONE FUROATE
     Indication: Product used for unknown indication
     Dosage: 1 DF (PUFF), BID
  7. ZENHALE [Concomitant]
     Active Substance: FORMOTEROL FUMARATE\MOMETASONE FUROATE
     Dosage: 1 DF (PUFF), BID
  8. ZENHALE [Concomitant]
     Active Substance: FORMOTEROL FUMARATE\MOMETASONE FUROATE
     Dosage: 1 DF (PUFF), BID
  9. ZENHALE [Concomitant]
     Active Substance: FORMOTEROL FUMARATE\MOMETASONE FUROATE
  10. ACETAMINOPHEN [Concomitant]
     Active Substance: ACETAMINOPHEN
     Indication: Premedication
  11. Reactine [Concomitant]
     Indication: Premedication
  12. HEPARIN [Concomitant]
     Active Substance: HEPARIN SODIUM
     Indication: Premedication
  13. EPIPEN [Concomitant]
     Active Substance: EPINEPHRINE
     Indication: Product used for unknown indication

REACTIONS (6)
  - Pneumonia [Recovering/Resolving]
  - Pyrexia [Recovered/Resolved]
  - Cough [Recovering/Resolving]
  - Catheter site haemorrhage [Recovered/Resolved]
  - Crying [Recovered/Resolved]
  - Poor venous access [Recovered/Resolved]

NARRATIVE: CASE EVENT DATE: 20240928
